FAERS Safety Report 4619311-X (Version None)
Quarter: 2005Q2

REPORT INFORMATION
  Report Type: 
  Country: None (occurrence: None)
  Receive Date: 20050321
  Receipt Date: 20040216
  Transmission Date: 20051028
  Serious: Yes (Other)
  Sender: FDA-Public Use
  Company Number: 2004-02-1466

PATIENT
  Age: 50 Year
  Sex: Male
  Weight: 113.8529 kg

DRUGS (3)
  1. PEG-INTRON [Suspect]
     Indication: HEPATITIS C
     Dosage: 150 MCG QWK SUBCUTANEOUS; 90 MCG QWK SUBCUTANEOUS
     Route: 058
     Dates: start: 20030910, end: 20040219
  2. PEG-INTRON [Suspect]
     Indication: HEPATITIS C
     Dosage: 150 MCG QWK SUBCUTANEOUS; 90 MCG QWK SUBCUTANEOUS
     Route: 058
     Dates: start: 20040220
  3. REBETOL [Suspect]
     Indication: HEPATITIS C
     Dosage: 1200 MG QD ORAL
     Route: 048
     Dates: start: 20030910

REACTIONS (2)
  - DIABETES MELLITUS [None]
  - THROMBOCYTOPENIA [None]
